FAERS Safety Report 15841889 (Version 1)
Quarter: 2019Q1

REPORT INFORMATION
  Report Type: Report from Study
  Country: None (occurrence: US)
  Receive Date: 20190118
  Receipt Date: 20190118
  Transmission Date: 20190417
  Serious: Yes (Other)
  Sender: FDA-Public Use
  Company Number: US-ABBVIE-17K-163-1997895-00

PATIENT
  Sex: Male
  Weight: 63.56 kg

DRUGS (3)
  1. METHOTREXATE. [Concomitant]
     Active Substance: METHOTREXATE
     Indication: ADJUVANT THERAPY
  2. HUMIRA [Suspect]
     Active Substance: ADALIMUMAB
     Indication: PSORIATIC ARTHROPATHY
     Route: 058
     Dates: start: 201706
  3. HUMIRA [Suspect]
     Active Substance: ADALIMUMAB
     Indication: PSORIASIS
     Route: 058
     Dates: start: 2016, end: 201705

REACTIONS (2)
  - Procedural pain [Recovered/Resolved]
  - Osteoarthritis [Recovered/Resolved]

NARRATIVE: CASE EVENT DATE: 2017
